FAERS Safety Report 20412336 (Version 3)
Quarter: 2022Q3

REPORT INFORMATION
  Report Type: Spontaneous
  Country: US (occurrence: US)
  Receive Date: 20220201
  Receipt Date: 20220830
  Transmission Date: 20221026
  Serious: Yes (Death, Other)
  Sender: FDA-Public Use
  Company Number: US-BAYER-2022A015939

PATIENT
  Age: 57 Year
  Sex: Male

DRUGS (4)
  1. STIVARGA [Suspect]
     Active Substance: REGORAFENIB
     Indication: Colorectal cancer metastatic
  2. LONSURF [Suspect]
     Active Substance: TIPIRACIL HYDROCHLORIDE\TRIFLURIDINE
     Indication: Colorectal cancer metastatic
     Dosage: 80 MG, BID
     Route: 048
     Dates: start: 20210628
  3. XELODA [Concomitant]
     Active Substance: CAPECITABINE
  4. CALCIUM CARBONATE [Concomitant]
     Active Substance: CALCIUM CARBONATE
     Dosage: UNK

REACTIONS (16)
  - Death [Fatal]
  - Colorectal cancer metastatic [Unknown]
  - Anaemia [None]
  - Ascites [None]
  - Thrombocytopenia [None]
  - Weight decreased [None]
  - Urge incontinence [None]
  - Chromaturia [None]
  - Umbilical hernia [None]
  - Leukocytosis [None]
  - Abdominal distension [None]
  - Dyspnoea [None]
  - Nausea [None]
  - Diarrhoea [None]
  - Fatigue [None]
  - Off label use [None]

NARRATIVE: CASE EVENT DATE: 20210101
